FAERS Safety Report 8149253 (Version 3)
Quarter: 2013Q1

REPORT INFORMATION
  Report Type: Spontaneous
  Country: US (occurrence: US)
  Receive Date: 20110922
  Receipt Date: 20130218
  Transmission Date: 20140127
  Serious: Yes (Other)
  Sender: FDA-Public Use
  Company Number: US-ASTRAZENECA-2011SE12585

PATIENT
  Sex: Male

DRUGS (30)
  1. SEROQUEL [Suspect]
     Route: 048
     Dates: start: 20070216
  2. ROZEREM [Concomitant]
     Dates: start: 20070212
  3. ROZEREM [Concomitant]
     Dates: start: 200906
  4. TOPAMAX [Concomitant]
     Dates: start: 20070212
  5. TOPAMAX [Concomitant]
     Route: 048
     Dates: start: 200906
  6. FLOMAX [Concomitant]
     Dates: start: 20070212
  7. FLOMAX [Concomitant]
     Dosage: ONCE DAILY 1/2 HOUR FOLLOWING THE SAME MEAL EACH DAY
     Route: 048
     Dates: start: 200906
  8. ABILIFY [Concomitant]
     Dates: start: 20070216
  9. LEVOTHYROX/SYNTHROID [Concomitant]
     Dates: start: 20070312
  10. LEVOTHYROX/SYNTHROID [Concomitant]
     Route: 048
     Dates: start: 200906
  11. SIMVASTATIN/ZOCOR [Concomitant]
     Dates: start: 20070314
  12. SIMVASTATIN/ZOCOR [Concomitant]
     Dosage: 20 MG PO TAKE 1 TAB BY MOUTH EVERY EVENING
     Route: 048
     Dates: start: 200906
  13. DIAZEPAM/VALIUM [Concomitant]
     Dates: start: 20070606
  14. DIAZEPAM/VALIUM [Concomitant]
     Dosage: 1/2 TABLET ONCE DAILY AT BEDTIME
     Route: 048
     Dates: start: 200906
  15. LAMICTAL [Concomitant]
     Dates: start: 20070627
  16. LAMICTAL [Concomitant]
     Dates: start: 200906
  17. FIORICET CODEINE [Concomitant]
     Dosage: 30 MG 50 MG 325 MG 40 MG 1 CAPSULE BY ORAL ROUTE EVERY 4 HOURS AS NEEDED
     Route: 048
     Dates: start: 200906
  18. HYDROCHLOROTHIAZIDE [Concomitant]
     Route: 048
     Dates: start: 200906
  19. IBUPROFEN [Concomitant]
     Route: 048
     Dates: start: 200906
  20. BENAZEPRIL [Concomitant]
     Route: 048
     Dates: start: 200906
  21. BENADRYL [Concomitant]
     Route: 048
     Dates: start: 200906
  22. GEODON [Concomitant]
     Dates: start: 20030205
  23. GEODON [Concomitant]
     Route: 048
     Dates: start: 200906
  24. MULTIVITAMIN [Concomitant]
     Route: 048
     Dates: start: 200906
  25. PAXIL [Concomitant]
     Dates: start: 20030205
  26. NEURONTIN [Concomitant]
     Dates: start: 20030205
  27. KLONOPIN [Concomitant]
     Dates: start: 20030205
  28. AMBIEN [Concomitant]
     Dates: start: 20030205
  29. VIAGRA [Concomitant]
     Dosage: 50 MG EVERY DAY AS REQUIRED
     Dates: start: 20030205
  30. TEGRETOL [Concomitant]
     Dates: start: 20030205

REACTIONS (4)
  - Pancreatitis [Unknown]
  - Diabetic coma [Unknown]
  - Type 2 diabetes mellitus [Unknown]
  - Diabetes mellitus inadequate control [Unknown]
